FAERS Safety Report 13183588 (Version 1)
Quarter: 2017Q1

REPORT INFORMATION
  Report Type: Spontaneous
  Country: US (occurrence: US)
  Receive Date: 20170203
  Receipt Date: 20170203
  Transmission Date: 20170428
  Serious: Yes (Life-Threatening, Other)
  Sender: FDA-Public Use
  Company Number: None

PATIENT
  Age: 58 Year
  Sex: Female
  Weight: 68.55 kg

DRUGS (2)
  1. AMLODIPINE [Suspect]
     Active Substance: AMLODIPINE BESYLATE
     Indication: HYPERTENSION
     Dosage: 5 MG TOOK ONCE ORALLY
     Route: 048
     Dates: start: 20170123, end: 20170123
  2. AMLODIPINE [Suspect]
     Active Substance: AMLODIPINE BESYLATE
     Indication: MITRAL VALVE PROLAPSE
     Dosage: 5 MG TOOK ONCE ORALLY
     Route: 048
     Dates: start: 20170123, end: 20170123

REACTIONS (4)
  - Paraesthesia [None]
  - Hypoaesthesia [None]
  - Blood pressure increased [None]
  - Disorientation [None]

NARRATIVE: CASE EVENT DATE: 20170123
